FAERS Safety Report 12238556 (Version 5)
Quarter: 2018Q1

REPORT INFORMATION
  Report Type: Spontaneous
  Country: US (occurrence: US)
  Receive Date: 20160405
  Receipt Date: 20180131
  Transmission Date: 20180508
  Serious: No
  Sender: FDA-Public Use
  Company Number: US-PFIZER INC-2016173108

PATIENT
  Sex: Female

DRUGS (13)
  1. LIPITOR [Suspect]
     Active Substance: ATORVASTATIN CALCIUM
     Dosage: UNK
  2. DEMEROL [Suspect]
     Active Substance: MEPERIDINE HYDROCHLORIDE
     Dosage: UNK
  3. SIMVASTATIN. [Suspect]
     Active Substance: SIMVASTATIN
     Dosage: UNK
  4. TRIAMTERENE. [Suspect]
     Active Substance: TRIAMTERENE
     Dosage: UNK
  5. SULFASALAZINE. [Suspect]
     Active Substance: SULFASALAZINE
     Dosage: UNK
  6. MORPHINE SULFATE. [Suspect]
     Active Substance: MORPHINE SULFATE
     Dosage: UNK
  7. DIURETIC [Suspect]
     Active Substance: UNSPECIFIED INGREDIENT
     Dosage: UNK
  8. SULFACETAMIDE SODIUM. [Suspect]
     Active Substance: SULFACETAMIDE SODIUM
     Dosage: UNK
  9. COLCHICINE. [Suspect]
     Active Substance: COLCHICINE
  10. DEPAKOTE [Suspect]
     Active Substance: DIVALPROEX SODIUM
     Dosage: UNK
  11. PRAVASTATIN. [Suspect]
     Active Substance: PRAVASTATIN
     Dosage: UNK
  12. MULTAQ [Suspect]
     Active Substance: DRONEDARONE
  13. CRESTOR [Suspect]
     Active Substance: ROSUVASTATIN CALCIUM
     Dosage: UNK

REACTIONS (1)
  - Drug hypersensitivity [Unknown]
